FAERS Safety Report 7259486-X (Version None)
Quarter: 2011Q1

REPORT INFORMATION
  Report Type: 
  Country: None (occurrence: None)
  Receive Date: 20110129
  Receipt Date: 20101215
  Transmission Date: 20110831
  Serious: No
  Sender: FDA-Public Use
  Company Number: US-MYLANLABS-2010S1022801

PATIENT
  Age: 45 Year
  Sex: Female

DRUGS (11)
  1. TRAZODONE HCL [Suspect]
     Route: 048
     Dates: start: 20101209, end: 20101209
  2. CLOMIPRAMINE HCL [Concomitant]
     Indication: MENTAL RETARDATION
     Route: 048
  3. LIPITOR [Suspect]
     Route: 048
     Dates: start: 20101209, end: 20101209
  4. LAMOTRIGINE [Suspect]
     Route: 048
     Dates: start: 20101209, end: 20101209
  5. CALCIUM CITRATE [Concomitant]
     Route: 048
  6. ARIPIPRAZOLE [Concomitant]
     Indication: MENTAL RETARDATION
     Route: 048
  7. CELEBREX [Suspect]
     Route: 048
     Dates: start: 20101209, end: 20101209
  8. VITAMIN D [Concomitant]
     Route: 048
  9. CLOZAPINE [Suspect]
     Route: 048
     Dates: start: 20101209, end: 20101209
  10. LAMOTRIGINE [Suspect]
     Route: 048
     Dates: start: 20101209, end: 20101209
  11. ORAL CONTRACEPTIVE NOS [Concomitant]
     Route: 048

REACTIONS (2)
  - DRUG ADMINISTRATION ERROR [None]
  - SOMNOLENCE [None]
